FAERS Safety Report 4653442-3 (Version None)
Quarter: 2005Q2

REPORT INFORMATION
  Report Type: 
  Country: None (occurrence: None)
  Receive Date: 20050505
  Receipt Date: 20030923
  Transmission Date: 20051028
  Serious: Yes (Other)
  Sender: FDA-Public Use
  Company Number: US-GLAXOSMITHKLINE-A0427053A

PATIENT
  Age: 57 Year
  Sex: Female
  Weight: 89.1 kg

DRUGS (4)
  1. AUGMENTIN '125' [Suspect]
     Indication: SINUSITIS
     Route: 048
  2. PREDNISONE TAB [Concomitant]
     Route: 065
  3. ADVAIR DISKUS 100/50 [Concomitant]
     Route: 055
  4. LEVOTHYROXINE SODIUM [Concomitant]

REACTIONS (4)
  - ABDOMINAL PAIN UPPER [None]
  - HEPATIC ENZYME INCREASED [None]
  - HEPATITIS [None]
  - JAUNDICE [None]
